FAERS Safety Report 8474077-0 (Version None)
Quarter: 2012Q2

REPORT INFORMATION
  Report Type: 
  Country: None (occurrence: None)
  Receive Date: 20120628
  Receipt Date: 20110519
  Transmission Date: 20120825
  Serious: Yes (Life-Threatening, Other)
  Sender: FDA-Public Use
  Company Number: US-MYLANLABS-2011S1007554

PATIENT
  Age: 46 Year
  Sex: Female
  Weight: 76.2 kg

DRUGS (11)
  1. CLOZAPINE [Suspect]
     Indication: SCHIZOAFFECTIVE DISORDER
     Route: 048
     Dates: start: 20110214, end: 20110411
  2. METFORMIN HCL [Concomitant]
     Route: 048
     Dates: start: 20110228
  3. THEOPHYLLINE [Concomitant]
     Route: 048
     Dates: start: 20100418
  4. CLOZAPINE [Suspect]
     Route: 048
     Dates: start: 20110214, end: 20110411
  5. WELLBUTRIN [Concomitant]
     Route: 048
     Dates: start: 20110228
  6. RISPERDAL [Concomitant]
     Route: 048
     Dates: start: 20101210
  7. CLOZAPINE [Suspect]
     Indication: SCHIZOPHRENIA
     Route: 048
     Dates: start: 20110214, end: 20110411
  8. CLOZAPINE [Suspect]
     Route: 048
     Dates: start: 20110214, end: 20110411
  9. LAMICTAL [Concomitant]
     Route: 048
     Dates: start: 20110228
  10. XANAX [Concomitant]
     Route: 048
     Dates: start: 20110114
  11. ZOCOR [Concomitant]
     Route: 048
     Dates: start: 20100112

REACTIONS (3)
  - GRANULOCYTOPENIA [None]
  - LEUKOPENIA [None]
  - AGRANULOCYTOSIS [None]
